FAERS Safety Report 5320549-7 (Version None)
Quarter: 2007Q2

REPORT INFORMATION
  Report Type: 
  Country: None (occurrence: None)
  Receive Date: 20070509
  Receipt Date: 20070430
  Transmission Date: 20071010
  Serious: Yes (Other)
  Sender: FDA-Public Use
  Company Number: CA-PFIZER INC-2007034850

PATIENT
  Sex: Male

DRUGS (13)
  1. CELEBREX [Suspect]
     Indication: RHEUMATOID ARTHRITIS
  2. LUPRON [Suspect]
     Indication: PROSTATE CANCER
     Route: 030
     Dates: start: 20030101
  3. HYDROCHLOROTHIAZIDE [Concomitant]
  4. VALSARTAN [Concomitant]
  5. ADALAT [Concomitant]
  6. LIPITOR [Concomitant]
  7. METOPROLOL SUCCINATE [Concomitant]
  8. ACETYLSALICYLIC ACID SRT [Concomitant]
  9. CALCIUM CHLORIDE [Concomitant]
  10. IRON [Concomitant]
  11. VITAMIN B-12 [Concomitant]
  12. VITAMIN D [Concomitant]
  13. ANACIN [Concomitant]

REACTIONS (7)
  - CARDIAC DISORDER [None]
  - DYSPNOEA [None]
  - FALL [None]
  - INSOMNIA [None]
  - POLLAKIURIA [None]
  - PROSTATIC SPECIFIC ANTIGEN INCREASED [None]
  - WRIST FRACTURE [None]
